FAERS Safety Report 5905844-2 (Version None)
Quarter: 2008Q4

REPORT INFORMATION
  Report Type: 
  Country: None (occurrence: None)
  Receive Date: 20081002
  Receipt Date: 20080925
  Transmission Date: 20090506
  Serious: Yes (Other)
  Sender: FDA-Public Use
  Company Number: US-JNJFOC-20080906569

PATIENT
  Sex: Female
  Weight: 77.11 kg

DRUGS (6)
  1. TOPAMAX [Suspect]
     Indication: TREMOR
     Route: 048
  2. PRILOSEC [Concomitant]
     Indication: DRUG USE FOR UNKNOWN INDICATION
     Route: 048
  3. MOBIC [Concomitant]
     Indication: ARTHRITIS
     Route: 048
  4. MIRAPAX [Concomitant]
     Indication: PARKINSONISM
     Route: 048
  5. LYRICA [Concomitant]
     Indication: ANALGESIA
     Route: 048
  6. GABITRAL [Concomitant]
     Indication: CONVULSION PROPHYLAXIS
     Route: 048

REACTIONS (2)
  - CONFUSIONAL STATE [None]
  - DISORIENTATION [None]
